FAERS Safety Report 5623694-1 (Version None)
Quarter: 2008Q1

REPORT INFORMATION
  Report Type: 
  Country: None (occurrence: None)
  Receive Date: 20080129
  Receipt Date: 20070716
  Transmission Date: 20080703
  Serious: Yes (Other)
  Sender: FDA-Public Use
  Company Number: WAES 0707USA02538

PATIENT
  Sex: Male

DRUGS (17)
  1. PRIMAXIN [Suspect]
     Dosage: 250 MG, Q12H IV
     Dates: start: 20070327
  2. ATIVAN [Concomitant]
  3. COZAAR [Concomitant]
  4. EPOGEN [Concomitant]
  5. NEPHRO-VITE RX [Concomitant]
  6. NORVASC [Concomitant]
  7. PERCOCET [Concomitant]
  8. PROTONIX [Concomitant]
  9. RENAGEL [Concomitant]
  10. RESTORIL [Concomitant]
  11. VANCOR [Concomitant]
  12. ZEMPLAR [Concomitant]
  13. CLONIDINE HCL [Concomitant]
  14. FERROUS SULFATE TAB [Concomitant]
  15. LISINOPRIL [Concomitant]
  16. METOPROLOL TARTRATE [Concomitant]
  17. PHENYTOIN [Concomitant]

REACTIONS (3)
  - CONVULSION [None]
  - FALL [None]
  - SUBDURAL HAEMATOMA [None]
